FAERS Safety Report 23840508 (Version 1)
Quarter: 2024Q2

REPORT INFORMATION
  Report Type: Report from Study
  Country: US (occurrence: US)
  Receive Date: 20240510
  Receipt Date: 20240510
  Transmission Date: 20240716
  Serious: No
  Sender: FDA-Public Use
  Company Number: US-ACADIA PHARMACEUTICALS INC.-ACA-2024-PIM-001870

PATIENT
  Age: 83 Year
  Sex: Male

DRUGS (5)
  1. NUPLAZID [Suspect]
     Active Substance: PIMAVANSERIN TARTRATE
     Indication: Parkinson^s disease
     Dosage: 34 MILLIGRAM, QD
     Route: 048
     Dates: start: 20231218, end: 20240325
  2. FLUDROCORTISONE [Concomitant]
     Active Substance: FLUDROCORTISONE
  3. MIDODRINE [Concomitant]
     Active Substance: MIDODRINE
  4. METHIMAZOLE [Concomitant]
     Active Substance: METHIMAZOLE
  5. DROXIDOPA [Concomitant]
     Active Substance: DROXIDOPA

REACTIONS (2)
  - Feeling of despair [Not Recovered/Not Resolved]
  - Apathy [Not Recovered/Not Resolved]

NARRATIVE: CASE EVENT DATE: 20240325
